FAERS Safety Report 24104959 (Version 1)
Quarter: 2024Q3

REPORT INFORMATION
  Report Type: Spontaneous
  Country: HR (occurrence: HR)
  Receive Date: 20240717
  Receipt Date: 20240717
  Transmission Date: 20241016
  Serious: Yes (Other)
  Sender: CHEPLAPHARM
  Company Number: None

PATIENT
  Age: 65 Year
  Sex: Male

DRUGS (10)
  1. CLONAZEPAM [Suspect]
     Active Substance: CLONAZEPAM
     Indication: Suicide attempt
     Dosage: DAILY DOSE: 8 MILLIGRAM
     Route: 048
     Dates: start: 20240517, end: 20240521
  2. QUETIAPINE [Suspect]
     Active Substance: QUETIAPINE
     Indication: Suicide attempt
     Dosage: DAILY DOSE: 150 MILLIGRAM
     Route: 048
     Dates: start: 20240517, end: 20240521
  3. ZOLPIDEM TARTRATE [Suspect]
     Active Substance: ZOLPIDEM TARTRATE
     Indication: Suicide attempt
     Dosage: DAILY DOSE: 10 MILLIGRAM
     Route: 048
     Dates: start: 20240517, end: 20240521
  4. ALLOPURINOL [Suspect]
     Active Substance: ALLOPURINOL
     Indication: Suicide attempt
     Route: 048
     Dates: start: 20240517, end: 20240521
  5. METFORMIN HYDROCHLORIDE [Suspect]
     Active Substance: METFORMIN HYDROCHLORIDE
     Indication: Suicide attempt
     Dosage: DAILY DOSE: 1700 MILLIGRAM
     Route: 048
     Dates: start: 20240517, end: 20240521
  6. DICLOFENAC [Suspect]
     Active Substance: DICLOFENAC
     Indication: Suicide attempt
     Route: 048
     Dates: start: 20240517, end: 20240521
  7. ALPRAZOLAM [Suspect]
     Active Substance: ALPRAZOLAM
     Indication: Suicide attempt
     Dosage: DAILY DOSE: 0.75 MILLIGRAM
     Route: 048
     Dates: start: 20240517, end: 20240521
  8. AMLODIPINE\INDAPAMIDE\PERINDOPRIL [Suspect]
     Active Substance: AMLODIPINE\INDAPAMIDE\PERINDOPRIL
     Indication: Suicide attempt
     Dosage: 1 DF = 1 TABLET = 8 MG OF PERINDOPRIL-TERT-BUTYLAMINE WHICH CORRESPONDS TO 6.68 MG OF PERINDOPRIL...
     Route: 048
     Dates: start: 20240517, end: 20240521
  9. PANTOPRAZOLE SODIUM [Suspect]
     Active Substance: PANTOPRAZOLE SODIUM
     Indication: Suicide attempt
     Dosage: DAILY DOSE: 8 MILLIGRAM
     Route: 048
     Dates: start: 20240517, end: 20240521
  10. ZALDIAR [Suspect]
     Active Substance: ACETAMINOPHEN\TRAMADOL HYDROCHLORIDE
     Indication: Suicide attempt
     Dosage: 1 DF = 1 TABLET = 37.5 MG TRAMADOL CHLORIDE AND 325 MG PARACETAMOL?DAILY DOSE: 2 DOSAGE FORM
     Route: 048
     Dates: start: 20240517, end: 20240521

REACTIONS (4)
  - Suicide attempt [Unknown]
  - Intentional product use issue [Unknown]
  - Hypotension [Unknown]
  - Lethargy [Unknown]

NARRATIVE: CASE EVENT DATE: 20240517
